FAERS Safety Report 7817440-0 (Version None)
Quarter: 2011Q4

REPORT INFORMATION
  Report Type: 
  Country: None (occurrence: None)
  Receive Date: 20111017
  Receipt Date: 20111014
  Transmission Date: 20120403
  Serious: No
  Sender: FDA-Public Use
  Company Number: US-B.I. PHARMACEUTICALS,INC./RIDGEFIELD-2011-BP-24267BP

PATIENT
  Sex: Female

DRUGS (4)
  1. TRADJENTA [Suspect]
     Indication: TYPE 2 DIABETES MELLITUS
     Dosage: 5 MG
     Route: 048
     Dates: start: 20111005, end: 20111014
  2. ZESTRIL [Concomitant]
     Indication: CARDIAC DISORDER
     Dosage: 40 MG
     Route: 048
     Dates: start: 19990101
  3. LOPRESSOR [Concomitant]
     Indication: HYPERTENSION
     Dosage: 100 MG
     Route: 048
     Dates: start: 19990101
  4. ACETAMINOPHEN [Concomitant]
     Indication: ARTHRITIS
     Dosage: 1000 MG
     Route: 048
     Dates: start: 20060101

REACTIONS (5)
  - BLOOD GLUCOSE INCREASED [None]
  - SWELLING [None]
  - DIZZINESS [None]
  - BLOOD PRESSURE INCREASED [None]
  - HEART RATE INCREASED [None]
